FAERS Safety Report 5917542-X (Version None)
Quarter: 2008Q4

REPORT INFORMATION
  Report Type: 
  Country: None (occurrence: None)
  Receive Date: 20081009
  Receipt Date: 20081001
  Transmission Date: 20090506
  Serious: Yes (Life-Threatening)
  Sender: FDA-Public Use
  Company Number: 2008AL010657

PATIENT
  Age: 62 Year
  Sex: Female

DRUGS (2)
  1. DICLOFENAC SODIUM [Suspect]
     Indication: PAIN
     Dosage: X1; PO
     Route: 048
     Dates: start: 20080723, end: 20080723
  2. SALBUTAMOL [Concomitant]

REACTIONS (2)
  - ATRIAL FIBRILLATION [None]
  - BRONCHOSPASM [None]
